FAERS Safety Report 9856403 (Version 1)
Quarter: 2014Q1

REPORT INFORMATION
  Report Type: Spontaneous
  Country: US (occurrence: DE)
  Receive Date: 20140130
  Receipt Date: 20140130
  Transmission Date: 20141002
  Serious: Yes (Hospitalization, Other)
  Sender: FDA-Public Use
  Company Number: DE-FRI-1000053262

PATIENT
  Age: 77 Year
  Sex: Male
  Weight: 66 kg

DRUGS (10)
  1. ROFLUMILAST [Suspect]
     Indication: CHRONIC OBSTRUCTIVE PULMONARY DISEASE
     Dosage: 1DF
     Dates: start: 20131122
  2. LONG TERM OXYGEN THERAPY [Concomitant]
  3. DECORTIN [Concomitant]
  4. ACETYLSALICYLIC ACID [Concomitant]
  5. NEBIVOLOL [Concomitant]
  6. ZOPICLON [Concomitant]
  7. SIMVASTATIN [Concomitant]
  8. RAMIPRIL [Concomitant]
  9. VIANI [Concomitant]
  10. SPIRIVA [Concomitant]

REACTIONS (1)
  - Pulmonary embolism [Recovered/Resolved]
